FAERS Safety Report 4337503-4 (Version None)
Quarter: 2004Q1

REPORT INFORMATION
  Report Type: 
  Country: None (occurrence: None)
  Receive Date: 20040329
  Receipt Date: 20040113
  Transmission Date: 20041129
  Serious: No
  Sender: FDA-Public Use
  Company Number: USA040156481

PATIENT
  Age: 10 Year
  Sex: Male
  Weight: 27 kg

DRUGS (1)
  1. STRATTERA [Suspect]
     Dosage: 50 MG/DAY

REACTIONS (1)
  - PRESCRIBED OVERDOSE [None]
